FAERS Safety Report 17305075 (Version 2)
Quarter: 2020Q1

REPORT INFORMATION
  Report Type: Report from Study
  Country: US (occurrence: US)
  Receive Date: 20200122
  Receipt Date: 20200210
  Transmission Date: 20200409
  Serious: No
  Sender: FDA-Public Use
  Company Number: PHHY2019US194992

PATIENT
  Age: 76 Year
  Sex: Female
  Weight: 62.7 kg

DRUGS (3)
  1. LAMPRENE [Suspect]
     Active Substance: CLOFAZIMINE
     Dosage: 50 MG, QOD
     Route: 048
     Dates: start: 20190907
  2. LAMPRENE [Suspect]
     Active Substance: CLOFAZIMINE
     Dosage: 25 MG, QD
     Route: 048
     Dates: start: 20190803
  3. LAMPRENE [Suspect]
     Active Substance: CLOFAZIMINE
     Indication: MYCOBACTERIAL INFECTION
     Dosage: 100 MG, QD
     Route: 048
     Dates: start: 20190620, end: 20190802

REACTIONS (6)
  - Vomiting [Recovered/Resolved]
  - Viral infection [Recovered/Resolved]
  - Nausea [Recovered/Resolved]
  - Pyrexia [Unknown]
  - Dyspnoea [Unknown]
  - Cough [Recovering/Resolving]

NARRATIVE: CASE EVENT DATE: 20190802
